FAERS Safety Report 6882640-3 (Version None)
Quarter: 2010Q3

REPORT INFORMATION
  Report Type: 
  Country: None (occurrence: None)
  Receive Date: 20100729
  Receipt Date: 20100719
  Transmission Date: 20110219
  Serious: Yes (Hospitalization)
  Sender: FDA-Public Use
  Company Number: US-JNJFOC-20100407000

PATIENT
  Sex: Female
  Weight: 78.02 kg

DRUGS (1)
  1. REMICADE [Suspect]
     Indication: RHEUMATOID ARTHRITIS
     Route: 042

REACTIONS (3)
  - ANAPHYLACTIC REACTION [None]
  - PHARYNGEAL OEDEMA [None]
  - TACHYCARDIA [None]
